FAERS Safety Report 6581280-3 (Version None)
Quarter: 2010Q1

REPORT INFORMATION
  Report Type: 
  Country: None (occurrence: None)
  Receive Date: 20100203
  Receipt Date: 20100125
  Transmission Date: 20100710
  Serious: Yes (Hospitalization)
  Sender: FDA-Public Use
  Company Number: DSJ-2010-01114

PATIENT
  Age: 69 Year
  Sex: Male

DRUGS (4)
  1. OLMETEC         (OLMESARTAN MEDOXOMIL) [Suspect]
     Indication: HYPERTENSION
     Dosage: 40 MG, PER ORAL
     Route: 048
     Dates: start: 20091230, end: 20100101
  2. CALBLOCK          (AZELNIDIPINE) [Suspect]
     Indication: HYPERTENSION
     Dosage: 16 MG, PER ORAL
     Route: 048
     Dates: start: 20100101
  3. AMLODIPINE BESYLATE [Suspect]
     Indication: HYPERTENSION
     Dosage: 5 MG (1 IN 1 D), PER ORAL
     Route: 048
     Dates: end: 20091229
  4. BISOPROLOL FUMARATE [Concomitant]

REACTIONS (3)
  - BLOOD ALKALINE PHOSPHATASE INCREASED [None]
  - GAMMA-GLUTAMYLTRANSFERASE INCREASED [None]
  - PYREXIA [None]
